FAERS Safety Report 21972009 (Version 1)
Quarter: 2023Q1

REPORT INFORMATION
  Report Type: Spontaneous
  Country: US (occurrence: US)
  Receive Date: 20230209
  Receipt Date: 20230209
  Transmission Date: 20230417
  Serious: Yes (Death, Other)
  Sender: FDA-Public Use
  Company Number: US-AMGEN-USASP2023019730

PATIENT

DRUGS (3)
  1. BEVACIZUMAB [Suspect]
     Active Substance: BEVACIZUMAB
     Indication: Glioblastoma
     Dosage: UNK
     Route: 065
  2. PEMBROLIZUMAB [Concomitant]
     Active Substance: PEMBROLIZUMAB
     Indication: Glioblastoma
     Dosage: UNK
     Route: 065
  3. NIVOLUMAB [Concomitant]
     Active Substance: NIVOLUMAB
     Indication: Glioblastoma
     Dosage: UNK
     Route: 065

REACTIONS (10)
  - Death [Fatal]
  - Hypothyroidism [Unknown]
  - Brain oedema [Unknown]
  - Pneumonitis [Unknown]
  - Lymphopenia [Unknown]
  - Hypertransaminasaemia [Unknown]
  - Rash [Unknown]
  - Colitis [Unknown]
  - Alopecia [Unknown]
  - Blood creatinine increased [Unknown]
